FAERS Safety Report 13620975 (Version 7)
Quarter: 2018Q4

REPORT INFORMATION
  Report Type: Spontaneous
  Country: US (occurrence: US)
  Receive Date: 20170607
  Receipt Date: 20181203
  Transmission Date: 20190204
  Serious: Yes (Hospitalization, Other)
  Sender: FDA-Public Use
  Company Number: US-PFIZER INC-2017034163

PATIENT
  Age: 32 Year
  Sex: Male

DRUGS (14)
  1. CALCIUM CARBONATE. [Interacting]
     Active Substance: CALCIUM CARBONATE
     Dosage: 25000 MG, DAILY
  2. CALCIUM ACETATE. [Interacting]
     Active Substance: CALCIUM ACETATE
     Indication: MINERAL SUPPLEMENTATION
     Dosage: 2001 MG, DAILY
  3. CALCIUM GLUCONATE. [Interacting]
     Active Substance: CALCIUM GLUCONATE
     Indication: MINERAL SUPPLEMENTATION
     Dosage: UNK
     Route: 042
  4. CALCIUM GLUCONATE. [Interacting]
     Active Substance: CALCIUM GLUCONATE
     Dosage: UNK (4-12 G/DAY)
     Route: 042
  5. DEXTROSE. [Concomitant]
     Active Substance: DEXTROSE
     Dosage: UNK
  6. PANTOPRAZOLE [Suspect]
     Active Substance: PANTOPRAZOLE
     Indication: GASTROOESOPHAGEAL REFLUX DISEASE
     Dosage: 40 MG, DAILY
     Route: 048
  7. CALCIUM CARBONATE. [Interacting]
     Active Substance: CALCIUM CARBONATE
     Dosage: 3750 MG, 3X/DAY
     Route: 048
  8. CALCIUM CARBONATE. [Interacting]
     Active Substance: CALCIUM CARBONATE
     Indication: MINERAL SUPPLEMENTATION
     Dosage: 1250 MG, 3X/DAY (3 IN A DAY BETWEEN MEALS)
     Route: 048
  9. CALCIUM CARBONATE. [Interacting]
     Active Substance: CALCIUM CARBONATE
     Dosage: 15000 MG, DAILY
  10. DEXTROSE. [Concomitant]
     Active Substance: DEXTROSE
     Indication: PERITONEAL DIALYSIS
     Dosage: UNK
  11. PANTOPRAZOLE [Interacting]
     Active Substance: PANTOPRAZOLE
     Indication: GASTROINTESTINAL MOTILITY DISORDER
  12. CALCIUM CARBONATE. [Interacting]
     Active Substance: CALCIUM CARBONATE
     Dosage: 20000 MG, DAILY
  13. CALCITRIOL. [Interacting]
     Active Substance: CALCITRIOL
     Indication: MINERAL SUPPLEMENTATION
     Dosage: 4 UG, DAILY
  14. CALCITRIOL. [Interacting]
     Active Substance: CALCITRIOL
     Dosage: 8 UG, DAILY

REACTIONS (3)
  - Hypocalcaemia [Recovered/Resolved]
  - Drug interaction [Recovered/Resolved]
  - Treatment noncompliance [Recovered/Resolved]
